FAERS Safety Report 6266934-0 (Version None)
Quarter: 2009Q3

REPORT INFORMATION
  Report Type: 
  Country: None (occurrence: None)
  Receive Date: 20090710
  Receipt Date: 20090710
  Transmission Date: 20100115
  Serious: Yes (Hospitalization)
  Sender: FDA-Public Use
  Company Number: None

PATIENT
  Age: 31 Year
  Sex: Male
  Weight: 122.7 kg

DRUGS (5)
  1. TRAMADOL HCL [Suspect]
     Indication: ARTHRALGIA
     Dosage: 8-15 50 MG PILLS DAILY ORALLY
     Route: 048
  2. TRAMADOL HCL [Suspect]
     Indication: PROCEDURAL PAIN
     Dosage: 8-15 50 MG PILLS DAILY ORALLY
     Route: 048
  3. CYMBALTA [Concomitant]
  4. LYRICA [Concomitant]
  5. HUMIRA [Concomitant]

REACTIONS (9)
  - CONFUSIONAL STATE [None]
  - DIARRHOEA [None]
  - DIZZINESS [None]
  - DRUG DEPENDENCE [None]
  - DRUG WITHDRAWAL SYNDROME [None]
  - HYPERHIDROSIS [None]
  - INFLUENZA LIKE ILLNESS [None]
  - THINKING ABNORMAL [None]
  - VOMITING [None]
